FAERS Safety Report 19165335 (Version 3)
Quarter: 2021Q3

REPORT INFORMATION
  Report Type: Spontaneous
  Country: FR (occurrence: FR)
  Receive Date: 20210421
  Receipt Date: 20210709
  Transmission Date: 20211014
  Serious: Yes (Other)
  Sender: FDA-Public Use
  Company Number: FR-PURDUE-USA-2021-0248044

PATIENT
  Age: 1 Day
  Sex: Female
  Weight: 2.45 kg

DRUGS (16)
  1. ABILIFY [Suspect]
     Active Substance: ARIPIPRAZOLE
     Dosage: 30 MG, DAILY [30MG PER DAY (24.2 TO 38 GESTATIONAL WEEKS)]
     Route: 064
  2. DULOXETINE. [Suspect]
     Active Substance: DULOXETINE
     Dosage: UNK (0 TO 6.3 GESTATIONA WEEKS)
     Route: 064
  3. DULOXETINE. [Suspect]
     Active Substance: DULOXETINE
     Dosage: UNK (0 TO 6.3 GESTATIONA WEEKS)
     Route: 064
  4. SERTRALINE [Suspect]
     Active Substance: SERTRALINE HYDROCHLORIDE
     Indication: PRODUCT USED FOR UNKNOWN INDICATION
     Dosage: UNK
     Route: 064
  5. NON?PMN BUPRENORPHINE [Suspect]
     Active Substance: BUPRENORPHINE
     Indication: PRODUCT USED FOR UNKNOWN INDICATION
     Dosage: UNK
     Route: 064
  6. NON?PMN BUPRENORPHINE [Suspect]
     Active Substance: BUPRENORPHINE
     Dosage: UNK
     Route: 064
  7. ABILIFY [Suspect]
     Active Substance: ARIPIPRAZOLE
     Dosage: 30 MG, DAILY [30MG PER DAY (24.2 TO 38 GESTATIONAL WEEKS)]
     Route: 064
  8. HALOPERIDOL. [Suspect]
     Active Substance: HALOPERIDOL
     Dosage: UNK (6.3 TO 22 GESTATIONAL WEEKS)
     Route: 064
  9. ABILIFY [Suspect]
     Active Substance: ARIPIPRAZOLE
     Indication: PRODUCT USED FOR UNKNOWN INDICATION
     Dosage: UNK
     Route: 064
  10. ABILIFY [Suspect]
     Active Substance: ARIPIPRAZOLE
     Dosage: 30 MG, DAILY [30MG PER DAY (0 TO 6.3 GESTATIONAL WEEKS)]
     Route: 064
  11. DULOXETINE. [Suspect]
     Active Substance: DULOXETINE
     Indication: PRODUCT USED FOR UNKNOWN INDICATION
     Dosage: UNK
     Route: 064
  12. SERTRALINE [Suspect]
     Active Substance: SERTRALINE HYDROCHLORIDE
     Dosage: UNK (6.3 TO 22 GESTATIONAL WEEKS)
     Route: 064
  13. NON?PMN BUPRENORPHINE [Suspect]
     Active Substance: BUPRENORPHINE
     Dosage: UNK
     Route: 064
  14. HALOPERIDOL. [Suspect]
     Active Substance: HALOPERIDOL
     Dosage: UNK (6.3 TO 22 GESTATIONAL WEEKS)
     Route: 065
  15. HALOPERIDOL. [Suspect]
     Active Substance: HALOPERIDOL
     Indication: PRODUCT USED FOR UNKNOWN INDICATION
     Dosage: UNK
     Route: 064
  16. SERTRALINE [Suspect]
     Active Substance: SERTRALINE HYDROCHLORIDE
     Dosage: UNK (6.3 TO 22 GESTATIONAL WEEKS)
     Route: 064

REACTIONS (3)
  - Foetal growth restriction [Unknown]
  - Foetal exposure during pregnancy [Unknown]
  - Low birth weight baby [Unknown]
